FAERS Safety Report 19826370 (Version 1)
Quarter: 2021Q3

REPORT INFORMATION
  Report Type: Spontaneous
  Country: HR (occurrence: HR)
  Receive Date: 20210914
  Receipt Date: 20210914
  Transmission Date: 20211014
  Serious: Yes (Hospitalization, Other)
  Sender: FDA-Public Use
  Company Number: HR-MICRO LABS LIMITED-ML2021-02166

PATIENT
  Age: 46 Year
  Sex: Female

DRUGS (8)
  1. PANTOPRAZOLE SODIUM. [Suspect]
     Active Substance: PANTOPRAZOLE SODIUM
  2. PROPRANOLOL [Suspect]
     Active Substance: PROPRANOLOL HYDROCHLORIDE
  3. DICLOFENAC SODIUM. [Suspect]
     Active Substance: DICLOFENAC SODIUM
     Indication: MIGRAINE
  4. SULFAMETHOXAZOLE AND TRIMETHOPRIM [Suspect]
     Active Substance: SULFAMETHOXAZOLE\TRIMETHOPRIM
  5. PREDNISONE. [Interacting]
     Active Substance: PREDNISONE
  6. CEFTRIAXONE. [Interacting]
     Active Substance: CEFTRIAXONE
     Route: 042
  7. ATORVASTATIN CALCIUM. [Suspect]
     Active Substance: ATORVASTATIN CALCIUM
  8. FUROSEMIDE. [Suspect]
     Active Substance: FUROSEMIDE

REACTIONS (3)
  - Nephropathy toxic [Recovered/Resolved]
  - Drug-induced liver injury [Recovered/Resolved]
  - Drug interaction [Unknown]
